FAERS Safety Report 8246068-6 (Version None)
Quarter: 2012Q1

REPORT INFORMATION
  Report Type: 
  Country: None (occurrence: None)
  Receive Date: 20120330
  Receipt Date: 20120322
  Transmission Date: 20120608
  Serious: Yes (Other)
  Sender: FDA-Public Use
  Company Number: DE-JNJFOC-20120311283

PATIENT
  Sex: Female

DRUGS (1)
  1. SIMPONI [Suspect]
     Indication: SARCOIDOSIS
     Route: 058

REACTIONS (3)
  - OFF LABEL USE [None]
  - VENTRICULAR EXTRASYSTOLES [None]
  - EJECTION FRACTION DECREASED [None]
